FAERS Safety Report 9257198 (Version 1)
Quarter: 2013Q2

REPORT INFORMATION
  Report Type: Spontaneous
  Country: US (occurrence: US)
  Receive Date: 20130426
  Receipt Date: 20130426
  Transmission Date: 20140414
  Serious: Yes (Other)
  Sender: FDA-Public Use
  Company Number: PHEH2013US009116

PATIENT
  Age: 53 Year
  Sex: Female

DRUGS (9)
  1. AFINITOR [Suspect]
     Dosage: 10 MG, QD
     Route: 048
     Dates: start: 20130407, end: 201304
  2. AFINITOR [Suspect]
     Dosage: 5 MG, DAILY
     Route: 048
     Dates: start: 20130422
  3. DOXYL [Concomitant]
  4. METFORMIN [Concomitant]
  5. FISH OIL [Concomitant]
  6. PLAVIX [Concomitant]
  7. VICODIN [Concomitant]
  8. ASPIRIN [Concomitant]
     Dosage: 81 MG, QD
  9. OCUVITE [Concomitant]

REACTIONS (1)
  - Cerebrovascular accident [Unknown]
